FAERS Safety Report 21388252 (Version 7)
Quarter: 2024Q4

REPORT INFORMATION
  Report Type: Spontaneous
  Country: JP (occurrence: JP)
  Receive Date: 20220928
  Receipt Date: 20241016
  Transmission Date: 20250114
  Serious: Yes (Life-Threatening, Hospitalization, Other)
  Sender: PFIZER
  Company Number: JP-PFIZER INC-PV202200072212

PATIENT
  Age: 45 Year
  Sex: Female
  Weight: 49.8 kg

DRUGS (28)
  1. SIROLIMUS [Suspect]
     Active Substance: SIROLIMUS
     Indication: Lymphangioleiomyomatosis
     Dosage: 1 MG, 1X/DAY
     Route: 048
     Dates: start: 20210616, end: 20211130
  2. SIROLIMUS [Suspect]
     Active Substance: SIROLIMUS
     Dosage: 2 MG, 1X/DAY
     Route: 048
     Dates: start: 20211201, end: 20220601
  3. SIROLIMUS [Suspect]
     Active Substance: SIROLIMUS
     Dosage: 1 MG, 1X/DAY
     Route: 048
     Dates: start: 20220602, end: 20220921
  4. SIROLIMUS [Suspect]
     Active Substance: SIROLIMUS
     Dosage: 1 MG, ALTERNATE DAY (2 D)
     Route: 048
     Dates: start: 20221130
  5. AMIKACIN SULFATE [Concomitant]
     Active Substance: AMIKACIN SULFATE
     Indication: Atypical mycobacterial infection
     Dosage: 500 MG, 1X/DAY
     Route: 042
     Dates: start: 20220901, end: 20221016
  6. AMIKACIN SULFATE [Concomitant]
     Active Substance: AMIKACIN SULFATE
     Dosage: 500 MG
     Route: 042
     Dates: start: 20221017
  7. CILASTATIN SODIUM\IMIPENEM [Concomitant]
     Active Substance: CILASTATIN SODIUM\IMIPENEM
     Indication: Atypical mycobacterial infection
     Dosage: 1 G, 1X/DAY
     Route: 042
     Dates: start: 20220921, end: 20221016
  8. CILASTATIN SODIUM\IMIPENEM [Concomitant]
     Active Substance: CILASTATIN SODIUM\IMIPENEM
     Dosage: 1 G
     Route: 042
     Dates: start: 20221017
  9. AZITHROMYCIN DIHYDRATE [Concomitant]
     Active Substance: AZITHROMYCIN DIHYDRATE
     Indication: Atypical mycobacterial infection
     Dosage: 250 MG, 1X/DAY
     Route: 048
     Dates: start: 20220922
  10. FAROPENEM SODIUM [Concomitant]
     Active Substance: FAROPENEM SODIUM
     Indication: Atypical mycobacterial infection
     Dosage: 200 MG, 3X/DAY
     Route: 048
     Dates: start: 20221017
  11. SITAFLOXACIN [Concomitant]
     Active Substance: SITAFLOXACIN
     Indication: Atypical mycobacterial infection
     Dosage: 100 MG, 1X/DAY
     Route: 048
     Dates: start: 20221017
  12. DEXTROMETHORPHAN HYDROBROMIDE [Concomitant]
     Active Substance: DEXTROMETHORPHAN HYDROBROMIDE
     Indication: Lymphangioleiomyomatosis
     Dosage: 30 MG, 3X/DAY
     Route: 048
     Dates: start: 20210617
  13. AMBROXOL HYDROCHLORIDE [Concomitant]
     Active Substance: AMBROXOL HYDROCHLORIDE
     Indication: Lymphangioleiomyomatosis
     Dosage: 45 MG, 1X/DAY
     Route: 048
  14. TRELEGY ELLIPTA [Concomitant]
     Active Substance: FLUTICASONE FUROATE\UMECLIDINIUM BROMIDE\VILANTEROL TRIFENATATE
     Indication: Lymphangioleiomyomatosis
     Dosage: 1 DF, 1X/DAY
     Route: 055
     Dates: start: 20210618, end: 20220925
  15. OMEPRAZOLE [Concomitant]
     Active Substance: OMEPRAZOLE
     Indication: Prophylaxis
     Dosage: 1 DF, 1X/DAY
     Route: 048
     Dates: start: 20220104
  16. SODIUM GUALENATE MONOHYDRATE [Concomitant]
     Active Substance: SODIUM GUALENATE MONOHYDRATE
     Indication: Stomatitis
     Dosage: UNK
     Route: 049
     Dates: start: 20220302
  17. LORATADINE [Concomitant]
     Active Substance: LORATADINE
     Dosage: 10 MG, 1X/DAY
     Route: 048
     Dates: end: 20220822
  18. PRANLUKAST [Concomitant]
     Active Substance: PRANLUKAST
     Dosage: 225 MG, 2X/DAY (225 MG,12 HR)
     Route: 048
     Dates: end: 20220815
  19. FLUTICASONE FUROATE [Concomitant]
     Active Substance: FLUTICASONE FUROATE
     Dosage: 1 DF, 1X/DAY
     Route: 045
  20. TEPRENONE [Concomitant]
     Active Substance: TEPRENONE
     Indication: Prophylaxis
     Dosage: 50 MG, 3X/DAY (50 MG,8 HR)
     Route: 048
     Dates: start: 20220922
  21. CARBOCYSTEINE [Concomitant]
     Active Substance: CARBOCYSTEINE
     Indication: Lymphangioleiomyomatosis
     Dosage: 250 MG, 3X/DAY (250 MG,8 HR)
     Route: 048
     Dates: start: 20220823
  22. MIYA-BM [Concomitant]
     Active Substance: CLOSTRIDIUM BUTYRICUM SPORES STRAIN M-55
     Indication: Prophylaxis
     Dosage: 2 DF, 3X/DAY (2 DOSAGE FORMS,8 HR)
     Route: 048
     Dates: start: 20220923
  23. UMECLIDINIUM BROMIDE\VILANTEROL TRIFENATATE [Concomitant]
     Active Substance: UMECLIDINIUM BROMIDE\VILANTEROL TRIFENATATE
     Indication: Lymphangioleiomyomatosis
     Dosage: 1 DF, 1X/DAY
     Route: 055
     Dates: start: 20220926
  24. LANSOPRAZOLE [Concomitant]
     Active Substance: LANSOPRAZOLE
     Indication: Prophylaxis
     Dosage: 1 DF, 1X/DAY
     Route: 048
     Dates: start: 20220104
  25. PRIMPERAN [Concomitant]
     Active Substance: METOCLOPRAMIDE HYDROCHLORIDE
     Indication: Prophylaxis
     Dosage: 1 DF
     Route: 048
     Dates: start: 20220924
  26. DESLORATADINE [Concomitant]
     Active Substance: DESLORATADINE
     Dosage: 5 MG, 1X/DAY
     Route: 048
     Dates: start: 20220823
  27. GENTAMICIN SULFATE [Concomitant]
     Active Substance: GENTAMICIN SULFATE
     Indication: Dermatitis acneiform
     Dosage: UNK
     Route: 065
     Dates: start: 20220104
  28. RINDERON VG [Concomitant]
     Active Substance: BETAMETHASONE VALERATE\GENTAMICIN SULFATE
     Indication: Dermatitis acneiform
     Dosage: UNK
     Route: 065
     Dates: start: 20220601

REACTIONS (6)
  - Atypical mycobacterial infection [Not Recovered/Not Resolved]
  - Mycobacterium abscessus infection [Recovering/Resolving]
  - Immunosuppression [Unknown]
  - COVID-19 [Recovering/Resolving]
  - Stomatitis [Recovering/Resolving]
  - Dermatitis acneiform [Recovering/Resolving]

NARRATIVE: CASE EVENT DATE: 20220104
